FAERS Safety Report 8598146-X (Version None)
Quarter: 2012Q3

REPORT INFORMATION
  Report Type: 
  Country: None (occurrence: None)
  Receive Date: 20120802
  Receipt Date: 20120725
  Transmission Date: 20120928
  Serious: Yes (Death, Hospitalization, Other)
  Sender: FDA-Public Use
  Company Number: 2012MA009124

PATIENT
  Age: 63 Year
  Sex: Male

DRUGS (1)
  1. KADIAN [Suspect]
     Indication: DRUG ABUSE
     Dosage: IV
     Route: 042

REACTIONS (6)
  - TACHYCARDIA [None]
  - GENERAL PHYSICAL HEALTH DETERIORATION [None]
  - LETHARGY [None]
  - AGITATION [None]
  - INTENTIONAL DRUG MISUSE [None]
  - LABILE BLOOD PRESSURE [None]
